FAERS Safety Report 14260049 (Version 3)
Quarter: 2020Q2

REPORT INFORMATION
  Report Type: Spontaneous
  Country: US (occurrence: US)
  Receive Date: 20171207
  Receipt Date: 20200505
  Transmission Date: 20200713
  Serious: No
  Sender: FDA-Public Use
  Company Number: US-VIFOR (INTERNATIONAL) INC.-VIT-2017-10000

PATIENT
  Age: 66 Year
  Sex: Male

DRUGS (8)
  1. OMEGA 3 500 [Concomitant]
  2. DILTIAZEM HYDROCHLORIDE. [Concomitant]
     Active Substance: DILTIAZEM HYDROCHLORIDE
  3. INSULIN [Concomitant]
     Active Substance: INSULIN NOS
  4. VITAMINS NOS [Concomitant]
     Active Substance: VITAMINS
  5. VELTASSA [Suspect]
     Active Substance: PATIROMER
     Indication: HYPERKALAEMIA
     Route: 048
  6. VELTASSA [Suspect]
     Active Substance: PATIROMER
     Dosage: 1/2 PACKET ON SOME DAYS
  7. LANTUS SOLOSTAR [Concomitant]
     Active Substance: INSULIN GLARGINE
  8. TORASEMIDE [Concomitant]
     Active Substance: TORSEMIDE

REACTIONS (3)
  - Constipation [Unknown]
  - Diarrhoea [Unknown]
  - Incorrect dose administered [Unknown]
